FAERS Safety Report 19402903 (Version 2)
Quarter: 2022Q3

REPORT INFORMATION
  Report Type: Spontaneous
  Country: US (occurrence: US)
  Receive Date: 20210610
  Receipt Date: 20220826
  Transmission Date: 20221026
  Serious: No
  Sender: FDA-Public Use
  Company Number: US-INCYTE CORPORATION-2021IN004956

PATIENT

DRUGS (2)
  1. JAKAFI [Suspect]
     Active Substance: RUXOLITINIB
     Indication: Polycythaemia vera
     Dosage: 20 MILLIGRAM, BID
     Route: 048
     Dates: start: 20200312
  2. JAKAFI [Suspect]
     Active Substance: RUXOLITINIB
     Dosage: TAKE 3 TABLETS BY MOUTH ALTERNATING WITH 4 TABLETS TWICE DAILY
     Route: 048
     Dates: start: 20220115

REACTIONS (3)
  - Rosacea [Not Recovered/Not Resolved]
  - Nail infection [Not Recovered/Not Resolved]
  - Blepharitis [Not Recovered/Not Resolved]
